FAERS Safety Report 25736111 (Version 1)
Quarter: 2025Q3

REPORT INFORMATION
  Report Type: Spontaneous
  Country: US (occurrence: US)
  Receive Date: 20250828
  Receipt Date: 20250828
  Transmission Date: 20251021
  Serious: No
  Sender: SANOFI AVENTIS
  Company Number: US-SA-2025SA251434

PATIENT
  Age: 35 Year
  Sex: Female

DRUGS (8)
  1. NEXVIAZYME [Suspect]
     Active Substance: AVALGLUCOSIDASE ALFA-NGPT
     Indication: Glycogen storage disease type II
     Route: 042
     Dates: start: 20230815, end: 20231107
  2. NEXVIAZYME [Suspect]
     Active Substance: AVALGLUCOSIDASE ALFA-NGPT
     Route: 042
     Dates: start: 20231121, end: 20231121
  3. NEXVIAZYME [Suspect]
     Active Substance: AVALGLUCOSIDASE ALFA-NGPT
     Route: 042
     Dates: start: 20231205, end: 20231205
  4. NEXVIAZYME [Suspect]
     Active Substance: AVALGLUCOSIDASE ALFA-NGPT
     Route: 042
     Dates: start: 20231219, end: 20240109
  5. NEXVIAZYME [Suspect]
     Active Substance: AVALGLUCOSIDASE ALFA-NGPT
     Route: 042
     Dates: start: 20240130, end: 20240130
  6. NEXVIAZYME [Suspect]
     Active Substance: AVALGLUCOSIDASE ALFA-NGPT
     Route: 042
     Dates: start: 20240213
  7. TYLENOL [Concomitant]
     Active Substance: ACETAMINOPHEN
     Indication: Premedication
     Route: 048
  8. SOLU-MEDROL [Concomitant]
     Active Substance: METHYLPREDNISOLONE SODIUM SUCCINATE

REACTIONS (15)
  - Chest pain [Recovered/Resolved]
  - Throat tightness [Recovering/Resolving]
  - Dysphonia [Recovered/Resolved]
  - Sinusitis [Unknown]
  - Flushing [Recovering/Resolving]
  - Drug specific antibody present [Unknown]
  - Rhinorrhoea [Unknown]
  - Tachycardia [Unknown]
  - Anxiety [Unknown]
  - Body temperature increased [Recovered/Resolved]
  - Eye pruritus [Unknown]
  - Ocular hyperaemia [Unknown]
  - Erythema [Unknown]
  - Chest pain [Recovered/Resolved]
  - Incorrect dose administered [Unknown]

NARRATIVE: CASE EVENT DATE: 20230101
